FAERS Safety Report 21254333 (Version 1)
Quarter: 2022Q3

REPORT INFORMATION
  Report Type: Spontaneous
  Country: US (occurrence: None)
  Receive Date: 20220825
  Receipt Date: 20220825
  Transmission Date: 20221027
  Serious: No
  Sender: FDA-Public Use
  Company Number: 2022A288044

PATIENT
  Sex: Male

DRUGS (1)
  1. FARXIGA [Suspect]
     Active Substance: DAPAGLIFLOZIN PROPANEDIOL
     Indication: Renal failure
     Route: 048

REACTIONS (4)
  - Rash macular [Unknown]
  - Rash maculo-papular [Unknown]
  - Drug hypersensitivity [Unknown]
  - Abnormal faeces [Unknown]
